FAERS Safety Report 8033127-6 (Version None)
Quarter: 2012Q1

REPORT INFORMATION
  Report Type: 
  Country: None (occurrence: None)
  Receive Date: 20120110
  Receipt Date: 20111230
  Transmission Date: 20120608
  Serious: Yes (Other)
  Sender: FDA-Public Use
  Company Number: FR-NOVOPROD-341677

PATIENT

DRUGS (4)
  1. VICTOZA [Suspect]
     Indication: TYPE 2 DIABETES MELLITUS
     Dosage: 1.2 MG, QD
     Route: 058
     Dates: start: 20100801
  2. DIAMICRON [Concomitant]
     Dosage: 120MG LM/DAY
     Route: 048
  3. GLUCOPHAGE [Concomitant]
  4. METFORMIN HCL [Concomitant]
     Dosage: 3000 MG, QD
     Route: 048

REACTIONS (1)
  - HYPERSENSITIVITY [None]
